FAERS Safety Report 13725964 (Version 3)
Quarter: 2017Q3

REPORT INFORMATION
  Report Type: Spontaneous
  Country: DE (occurrence: DE)
  Receive Date: 20170706
  Receipt Date: 20170811
  Transmission Date: 20171127
  Serious: Yes (Other)
  Sender: FDA-Public Use
  Company Number: PHHY2017DE097530

PATIENT
  Age: 70 Year
  Sex: Male
  Weight: 104 kg

DRUGS (4)
  1. SEVIKAR HCT [Concomitant]
     Active Substance: AMLODIPINE BESYLATE\HYDROCHLOROTHIAZIDE\OLMESARTAN MEDOXOMIL
     Indication: HYPERTENSION
     Dosage: 40 MG, UNK
     Route: 048
  2. LANTUS [Concomitant]
     Active Substance: INSULIN GLARGINE
     Indication: DIABETES MELLITUS
     Dosage: 1 DF, QD (IN THE EVENING)
     Route: 065
  3. COSENTYX [Suspect]
     Active Substance: SECUKINUMAB
     Indication: PSORIASIS
     Dosage: 300 MG PER ADMINISTRATION (2X 150 MG)
     Route: 058
     Dates: start: 20170428, end: 20170505
  4. INSUMAN RAPID [Concomitant]
     Active Substance: INSULIN HUMAN
     Indication: DIABETES MELLITUS
     Dosage: UNK UNK, BID
     Route: 065

REACTIONS (2)
  - Respiratory distress [Recovered/Resolved]
  - Respiratory distress [Recovered/Resolved]

NARRATIVE: CASE EVENT DATE: 20170501
